FAERS Safety Report 5185361-0 (Version None)
Quarter: 2006Q4

REPORT INFORMATION
  Report Type: 
  Country: None (occurrence: None)
  Receive Date: 20061220
  Receipt Date: 20060710
  Transmission Date: 20070319
  Serious: No
  Sender: FDA-Public Use
  Company Number: US-GLAXOSMITHKLINE-A0611585A

PATIENT
  Age: 33 Year
  Sex: Female

DRUGS (1)
  1. NICODERM CQ [Suspect]
     Dosage: 14MG SINGLE DOSE
     Route: 062

REACTIONS (4)
  - HEADACHE [None]
  - HEART RATE INCREASED [None]
  - MALAISE [None]
  - STOMACH DISCOMFORT [None]
